FAERS Safety Report 24709495 (Version 1)
Quarter: 2024Q4

REPORT INFORMATION
  Report Type: Spontaneous
  Country: NP (occurrence: NP)
  Receive Date: 20241209
  Receipt Date: 20241209
  Transmission Date: 20250114
  Serious: Yes (Life-Threatening, Hospitalization, Other)
  Sender: CIPLA
  Company Number: NP-MLMSERVICE-20241118-PI262809-00050-1

PATIENT

DRUGS (1)
  1. AMLODIPINE [Suspect]
     Active Substance: AMLODIPINE BESYLATE
     Dosage: 430 MILLIGRAM, TOTAL (43 TABLETS OF AMLODIPINE 10 MG (A TOTAL OF 430 MG))
     Route: 048

REACTIONS (8)
  - Loss of consciousness [Recovered/Resolved]
  - Respiratory failure [Recovering/Resolving]
  - Non-cardiogenic pulmonary oedema [Recovering/Resolving]
  - Respiratory distress [Recovering/Resolving]
  - Oliguria [Recovering/Resolving]
  - Toxicity to various agents [Recovering/Resolving]
  - Intentional overdose [Unknown]
  - Hypotension [Recovering/Resolving]
